FAERS Safety Report 12232697 (Version 2)
Quarter: 2016Q2

REPORT INFORMATION
  Report Type: Spontaneous
  Country: US (occurrence: US)
  Receive Date: 20160401
  Receipt Date: 20160525
  Transmission Date: 20160815
  Serious: Yes (Other)
  Sender: FDA-Public Use
  Company Number: US-PFIZER INC-2016176999

PATIENT
  Age: 43 Year
  Sex: Female

DRUGS (1)
  1. GABAPENTIN. [Suspect]
     Active Substance: GABAPENTIN
     Dosage: 300 MG, UNK
     Dates: start: 2014, end: 2014

REACTIONS (3)
  - Confusional state [Recovered/Resolved]
  - Memory impairment [Recovered/Resolved]
  - Abasia [Unknown]

NARRATIVE: CASE EVENT DATE: 2014
